FAERS Safety Report 25770525 (Version 1)
Quarter: 2025Q3

REPORT INFORMATION
  Report Type: Spontaneous
  Country: US (occurrence: US)
  Receive Date: 20250908
  Receipt Date: 20250908
  Transmission Date: 20251020
  Serious: Yes (Other)
  Sender: SPECGX
  Company Number: US-SPECGX-T202501335

PATIENT
  Sex: Female
  Weight: 75 kg

DRUGS (4)
  1. MORPHINE [Suspect]
     Active Substance: MORPHINE
     Indication: Myalgia
     Dosage: 45 MILLIGRAM, QD (ONE IN THE MORNING AND TWO IN THE EVENING; 15 MG IN THE MORNING AND 30 MG IN THE E
     Route: 065
  2. MORPHINE [Suspect]
     Active Substance: MORPHINE
     Dosage: 45 MILLIGRAM, QD (ONE IN THE MORNING AND TWO IN THE EVENING; 15 MG IN THE MORNING AND 30 MG IN THE E
     Route: 065
     Dates: start: 20250722, end: 20250803
  3. LEVOTHYROXINE [Concomitant]
     Active Substance: LEVOTHYROXINE
     Indication: Thyroid disorder
     Route: 065
  4. GABAPENTIN [Concomitant]
     Active Substance: GABAPENTIN
     Indication: Product used for unknown indication
     Route: 065

REACTIONS (6)
  - Surgery [Unknown]
  - Tooth disorder [Unknown]
  - Tooth extraction [Unknown]
  - Insomnia [Recovering/Resolving]
  - Loss of personal independence in daily activities [Recovering/Resolving]
  - Drug ineffective [Unknown]

NARRATIVE: CASE EVENT DATE: 20240101
